FAERS Safety Report 21419503 (Version 1)
Quarter: 2022Q4

REPORT INFORMATION
  Report Type: Report from Study
  Country: CO (occurrence: CO)
  Receive Date: 20221006
  Receipt Date: 20221006
  Transmission Date: 20230112
  Serious: Yes (Hospitalization)
  Sender: FDA-Public Use
  Company Number: CO-BRISTOL-MYERS SQUIBB COMPANY-2022-115878

PATIENT
  Age: 59 Year
  Sex: Male
  Weight: 58 kg

DRUGS (1)
  1. SPRYCEL [Suspect]
     Active Substance: DASATINIB
     Indication: Chronic myeloid leukaemia
     Dosage: 700 MG EVERY 7 DAYS?100 MG/ML DAILY
     Route: 048
     Dates: start: 20160408

REACTIONS (1)
  - White blood cell count increased [Recovering/Resolving]

NARRATIVE: CASE EVENT DATE: 20220928
